FAERS Safety Report 6507047-X (Version None)
Quarter: 2009Q4

REPORT INFORMATION
  Report Type: 
  Country: None (occurrence: None)
  Receive Date: 20091221
  Receipt Date: 20091207
  Transmission Date: 20100525
  Serious: Yes (Other)
  Sender: FDA-Public Use
  Company Number: PHHY2009ES52768

PATIENT
  Age: 55 Year
  Sex: Female

DRUGS (2)
  1. ZOMETA [Suspect]
     Dosage: UNK
     Dates: start: 20081028
  2. CORTICOSTEROIDS [Concomitant]
     Dosage: UNK
     Dates: start: 20080201

REACTIONS (2)
  - OSTEONECROSIS [None]
  - PAIN IN JAW [None]
